FAERS Safety Report 9266717 (Version 1)
Quarter: 2013Q2

REPORT INFORMATION
  Report Type: Spontaneous
  Country: FR (occurrence: FR)
  Receive Date: 20130502
  Receipt Date: 20130502
  Transmission Date: 20140414
  Serious: Yes (Hospitalization)
  Sender: FDA-Public Use
  Company Number: FR-PFIZER INC-2013134811

PATIENT
  Age: 54 Year
  Sex: Male

DRUGS (3)
  1. CORDARONE [Suspect]
     Dosage: 400 MG, DAILY
     Route: 048
     Dates: start: 20130308, end: 20130320
  2. TRIATEC [Suspect]
     Dosage: 5MG, DAILY
     Route: 048
     Dates: start: 20130215, end: 20130320
  3. DIAMOX [Suspect]
     Indication: METABOLIC ALKALOSIS
     Dosage: 750 MG, DAILY
     Route: 048
     Dates: start: 20130318, end: 20130320

REACTIONS (2)
  - Agranulocytosis [Recovered/Resolved]
  - Sepsis [Unknown]
